FAERS Safety Report 25898737 (Version 2)
Quarter: 2025Q4

REPORT INFORMATION
  Report Type: Report from Study
  Country: US (occurrence: US)
  Receive Date: 20251009
  Receipt Date: 20251015
  Transmission Date: 20260119
  Serious: Yes (Other)
  Sender: ABBVIE
  Company Number: US-ABBVIE-6494006

PATIENT
  Age: 65 Year
  Sex: Female

DRUGS (1)
  1. REFRESH RELIEVA PF [Suspect]
     Active Substance: CARBOXYMETHYLCELLULOSE SODIUM\GLYCERIN
     Indication: Product used for unknown indication
     Dosage: PRESERVATIVE FREE
     Route: 047

REACTIONS (4)
  - Eye operation [Unknown]
  - Product container issue [Not Recovered/Not Resolved]
  - Incorrect dose administered [Unknown]
  - Physical product label issue [Not Recovered/Not Resolved]
